FAERS Safety Report 10195004 (Version 1)
Quarter: 2014Q2

REPORT INFORMATION
  Report Type: Spontaneous
  Country: SE (occurrence: SE)
  Receive Date: 20140526
  Receipt Date: 20140526
  Transmission Date: 20141212
  Serious: Yes (Hospitalization, Disabling)
  Sender: FDA-Public Use
  Company Number: SE-PFIZER INC-2014141497

PATIENT
  Age: 23 Year
  Sex: Male
  Weight: 84 kg

DRUGS (2)
  1. ZOLOFT [Suspect]
     Indication: DEPRESSION
     Dosage: 50MG TWICE DAILY
     Route: 048
     Dates: start: 2004, end: 200901
  2. ZOLOFT [Suspect]
     Indication: ANXIETY

REACTIONS (4)
  - Thought blocking [Recovered/Resolved with Sequelae]
  - Libido increased [Recovered/Resolved with Sequelae]
  - Personality change [Recovered/Resolved with Sequelae]
  - Derealisation [Recovered/Resolved with Sequelae]
